FAERS Safety Report 6523735-3 (Version None)
Quarter: 2009Q4

REPORT INFORMATION
  Report Type: 
  Country: None (occurrence: None)
  Receive Date: 20091231
  Receipt Date: 20091218
  Transmission Date: 20100525
  Serious: Yes (Hospitalization)
  Sender: FDA-Public Use
  Company Number: US-SANOFI-AVENTIS-2009SA001408

PATIENT
  Age: 66 Year
  Sex: Male
  Weight: 119 kg

DRUGS (20)
  1. MULTAQ [Suspect]
     Indication: ATRIAL FIBRILLATION
     Route: 048
     Dates: start: 20090824, end: 20090911
  2. MULTAQ [Suspect]
     Indication: ATRIAL FLUTTER
     Route: 048
     Dates: start: 20090824, end: 20090911
  3. COUMADIN [Suspect]
     Route: 048
  4. DETROL [Concomitant]
  5. RANOLAZINE [Concomitant]
  6. ALTACE [Concomitant]
  7. POTASSIUM [Concomitant]
  8. NITROGLYCERIN [Concomitant]
  9. NIASPAN [Concomitant]
  10. LASIX [Concomitant]
  11. SYNTHROID [Concomitant]
  12. ISOSORBIDE [Concomitant]
  13. LANTUS [Concomitant]
  14. INDOCIN [Concomitant]
  15. VICODIN [Concomitant]
  16. HUMALOG [Concomitant]
  17. PEPCID [Concomitant]
  18. CARVEDILOL [Concomitant]
  19. NORVASC [Concomitant]
  20. VYTORIN [Concomitant]

REACTIONS (4)
  - DIZZINESS [None]
  - INTERNATIONAL NORMALISED RATIO INCREASED [None]
  - NAUSEA [None]
  - TREMOR [None]
